FAERS Safety Report 16461961 (Version 3)
Quarter: 2019Q3

REPORT INFORMATION
  Report Type: Spontaneous
  Country: DE (occurrence: DE)
  Receive Date: 20190621
  Receipt Date: 20190803
  Transmission Date: 20191004
  Serious: Yes (Other)
  Sender: FDA-Public Use
  Company Number: DE-AUROBINDO-AUR-APL-2019-034622

PATIENT

DRUGS (1)
  1. SIMVASTATIN FILM-COATED TABLETS 40MG [Suspect]
     Active Substance: SIMVASTATIN
     Indication: BLOOD CHOLESTEROL
     Dosage: 40 MILLIGRAM, ONCE A DAY (OVER A PERIOD OF 5 MONTHS)
     Route: 048
     Dates: end: 201810

REACTIONS (2)
  - Non-alcoholic steatohepatitis [Not Recovered/Not Resolved]
  - Hepatic enzyme increased [Recovering/Resolving]
